FAERS Safety Report 4284662-8 (Version None)
Quarter: 2004Q1

REPORT INFORMATION
  Report Type: 
  Country: None (occurrence: None)
  Receive Date: 20040203
  Receipt Date: 20040127
  Transmission Date: 20041129
  Serious: Yes (Hospitalization)
  Sender: FDA-Public Use
  Company Number: WAES 0401FRA00063

PATIENT
  Age: 81 Year
  Sex: Male

DRUGS (3)
  1. HYZAAR [Suspect]
     Route: 048
     Dates: start: 20031125, end: 20031130
  2. INFLUENZA VIRUS VACCINE (UNSPECIFIED) [Suspect]
     Indication: PROPHYLAXIS
     Route: 058
     Dates: start: 20031118, end: 20031118
  3. NOROXIN [Suspect]
     Route: 048
     Dates: start: 20031125, end: 20031130

REACTIONS (5)
  - PROTEIN URINE PRESENT [None]
  - PURPURA [None]
  - RED BLOOD CELLS URINE POSITIVE [None]
  - SKIN NECROSIS [None]
  - WHITE BLOOD CELLS URINE POSITIVE [None]
